FAERS Safety Report 10418097 (Version 1)
Quarter: 2014Q2

REPORT INFORMATION
  Report Type: Spontaneous
  Country: US (occurrence: None)
  Receive Date: 20140609
  Receipt Date: 20140609
  Transmission Date: 20141212
  Serious: No
  Sender: FDA-Public Use
  Company Number: 2014TUS001519

PATIENT
  Age: 36 Year
  Sex: Female

DRUGS (2)
  1. BRINTELLIX 10 MG [Suspect]
     Indication: DEPRESSION
     Route: 048
     Dates: start: 20140224, end: 20140227
  2. CLONAZEPAM (CLONAZEPAM) [Concomitant]

REACTIONS (2)
  - Haemorrhage [None]
  - Pruritus generalised [None]
